FAERS Safety Report 11684507 (Version 2)
Quarter: 2015Q4

REPORT INFORMATION
  Report Type: Spontaneous
  Country: US (occurrence: US)
  Receive Date: 20151029
  Receipt Date: 20151118
  Transmission Date: 20160304
  Serious: No
  Sender: FDA-Public Use
  Company Number: GXBR2015US002013

PATIENT
  Age: 69 Year
  Sex: Male
  Weight: 65.76 kg

DRUGS (1)
  1. HYDROCORTISONE. [Suspect]
     Active Substance: HYDROCORTISONE
     Indication: ECZEMA
     Dosage: UNK DF, BID
     Route: 061
     Dates: start: 20150826, end: 20150901

REACTIONS (4)
  - Application site discolouration [Unknown]
  - Application site dryness [Unknown]
  - Application site pain [Unknown]
  - Application site rash [Unknown]
